FAERS Safety Report 4304202-4 (Version None)
Quarter: 2004Q1

REPORT INFORMATION
  Report Type: 
  Country: None (occurrence: None)
  Receive Date: 20040224
  Receipt Date: 20040217
  Transmission Date: 20041129
  Serious: Yes (Life-Threatening, Hospitalization)
  Sender: FDA-Public Use
  Company Number: FR-JNJFOC-20040101283

PATIENT
  Age: 10 Year
  Sex: Female
  Weight: 27 kg

DRUGS (6)
  1. REMICADE [Suspect]
     Indication: COLITIS
     Dosage: SEE IMAGE
     Route: 042
     Dates: start: 20011023, end: 20011212
  2. REMICADE [Suspect]
     Indication: COLITIS
     Dosage: SEE IMAGE
     Route: 042
     Dates: end: 20031205
  3. SOLU-MEDROL [Concomitant]
  4. POLARAMINE [Concomitant]
  5. CODENFAN (ALL OTHER THERAPEUTIC PRODUCTS) [Concomitant]
  6. PREDNISONE [Concomitant]

REACTIONS (12)
  - CATHETER SITE PHLEBITIS [None]
  - DYSPHAGIA [None]
  - INFLAMMATION [None]
  - INFLUENZA LIKE ILLNESS [None]
  - MYALGIA [None]
  - ORAL PRURITUS [None]
  - PHLEBOTHROMBOSIS [None]
  - PRURITUS [None]
  - PYREXIA [None]
  - SHOCK HAEMORRHAGIC [None]
  - TYPE IV HYPERSENSITIVITY REACTION [None]
  - URTICARIA [None]
